FAERS Safety Report 14950866 (Version 1)
Quarter: 2018Q2

REPORT INFORMATION
  Report Type: Spontaneous
  Country: BR (occurrence: BR)
  Receive Date: 20180530
  Receipt Date: 20180530
  Transmission Date: 20180711
  Serious: Yes (Hospitalization)
  Sender: FDA-Public Use
  Company Number: BR-CELGENEUS-BRA-20180309020

PATIENT
  Age: 59 Year
  Sex: Female

DRUGS (2)
  1. VIDAZA [Suspect]
     Active Substance: AZACITIDINE
     Indication: MYELODYSPLASTIC SYNDROME
     Route: 030
     Dates: start: 20141010, end: 201802
  2. VIDAZA [Suspect]
     Active Substance: AZACITIDINE
     Route: 030
     Dates: start: 20180516

REACTIONS (4)
  - Pulmonary haemorrhage [Recovered/Resolved]
  - Anaemia [Recovered/Resolved]
  - Pneumonia [Recovered/Resolved]
  - Thrombocytopenia [Recovered/Resolved]

NARRATIVE: CASE EVENT DATE: 201802
